FAERS Safety Report 5091197-1 (Version None)
Quarter: 2006Q3

REPORT INFORMATION
  Report Type: 
  Country: None (occurrence: None)
  Receive Date: 20060829
  Receipt Date: 20060816
  Transmission Date: 20061208
  Serious: Yes (Other)
  Sender: FDA-Public Use
  Company Number: PHBS2006CN12327

PATIENT
  Age: 69 Year
  Sex: Male

DRUGS (2)
  1. ZOMETA [Suspect]
     Dosage: 4 MG, EVERY 4 TO 6 WEEKS
     Route: 042
     Dates: start: 20050701
  2. ZOMETA [Suspect]
     Route: 042
     Dates: start: 20060601

REACTIONS (5)
  - ABDOMINAL PAIN UPPER [None]
  - APPENDICITIS [None]
  - ASTHMA [None]
  - NASOPHARYNGITIS [None]
  - PAIN [None]
